FAERS Safety Report 6991379-5 (Version None)
Quarter: 2010Q3

REPORT INFORMATION
  Report Type: 
  Country: None (occurrence: None)
  Receive Date: 20100916
  Receipt Date: 20090709
  Transmission Date: 20110219
  Serious: Yes (Other)
  Sender: FDA-Public Use
  Company Number: US-WYE-H09108109

PATIENT
  Sex: Male
  Weight: 98.52 kg

DRUGS (6)
  1. TORISEL [Suspect]
     Indication: METASTATIC RENAL CELL CARCINOMA
     Dosage: 25MG FREQUENCY UNSPECIFIED
     Route: 042
     Dates: start: 20090206, end: 20090501
  2. ALDACTONE [Concomitant]
     Dosage: LOW DOSE
     Route: 048
     Dates: end: 20090101
  3. INSULIN [Concomitant]
     Indication: HYPERGLYCAEMIA
     Dosage: BLOOD GLUCOSE IN 300'S
     Route: 058
  4. HYDROCHLOROTHIAZIDE [Concomitant]
     Dosage: LOW DOSES
     Dates: end: 20090101
  5. POTASSIUM [Concomitant]
     Indication: ELECTROLYTE DEPLETION
     Route: 048
  6. LEVOTHYROXINE [Concomitant]
     Route: 048

REACTIONS (1)
  - OEDEMA PERIPHERAL [None]
